FAERS Safety Report 21906695 (Version 1)
Quarter: 2023Q1

REPORT INFORMATION
  Report Type: Report from Study
  Country: US (occurrence: US)
  Receive Date: 20230125
  Receipt Date: 20230125
  Transmission Date: 20230418
  Serious: Yes (Other)
  Sender: FDA-Public Use
  Company Number: US-ABBVIE-4280436

PATIENT
  Sex: Female

DRUGS (1)
  1. RINVOQ [Suspect]
     Active Substance: UPADACITINIB
     Indication: Colitis ulcerative
     Dosage: FORM STRENGTH: 30 MG
     Route: 048
     Dates: start: 20221229

REACTIONS (7)
  - Haematological neoplasm [Unknown]
  - Nasopharyngitis [Unknown]
  - Colitis ulcerative [Unknown]
  - Acne [Unknown]
  - Hair disorder [Unknown]
  - Skin disorder [Unknown]
  - Haemangioma of skin [Unknown]
